FAERS Safety Report 21346429 (Version 2)
Quarter: 2022Q3

REPORT INFORMATION
  Report Type: Spontaneous
  Country: US (occurrence: US)
  Receive Date: 20220917
  Receipt Date: 20220920
  Transmission Date: 20221026
  Serious: Yes (Hospitalization)
  Sender: FDA-Public Use
  Company Number: US-ALKEM LABORATORIES LIMITED-US-ALKEM-2022-08755

PATIENT
  Age: 63 Year
  Sex: Male

DRUGS (13)
  1. BRIVARACETAM [Suspect]
     Active Substance: BRIVARACETAM
     Indication: Partial seizures
     Dosage: 200 MILLIGRAM, QD
     Route: 065
  2. LAMOTRIGINE [Suspect]
     Active Substance: LAMOTRIGINE
     Indication: Partial seizures
     Dosage: 300 MILLIGRAM, OD
     Route: 065
  3. LEVETIRACETAM [Suspect]
     Active Substance: LEVETIRACETAM
     Indication: Partial seizures
     Dosage: 3000 MILLIGRAM, QD
     Route: 065
  4. LACOSAMIDE [Suspect]
     Active Substance: LACOSAMIDE
     Indication: Partial seizures
     Dosage: 200 MILLIGRAM, BID (200 MG TWICE DAILY)
     Route: 065
  5. LACOSAMIDE [Suspect]
     Active Substance: LACOSAMIDE
     Dosage: 600 MILLIGRAM, QD
     Route: 065
  6. TIAGABINE [Suspect]
     Active Substance: TIAGABINE
     Indication: Partial seizures
     Dosage: 12 MILLIGRAM (FOUR TIMES DAILY)
     Route: 065
  7. TIAGABINE [Suspect]
     Active Substance: TIAGABINE
     Dosage: 42 MILLIGRAM, QD
     Route: 065
  8. PERAMPANEL [Suspect]
     Active Substance: PERAMPANEL
     Indication: Partial seizures
     Dosage: 16 MILLIGRAM, HS
     Route: 065
  9. PERAMPANEL [Suspect]
     Active Substance: PERAMPANEL
     Dosage: 12 MILLIGRAM, HS
     Route: 065
  10. PERAMPANEL [Suspect]
     Active Substance: PERAMPANEL
     Dosage: 8 MILLIGRAM, HS
     Route: 065
  11. CLONAZEPAM [Suspect]
     Active Substance: CLONAZEPAM
     Indication: Partial seizures
     Dosage: 1 MILLIGRAM, HS
     Route: 065
  12. VALPROIC ACID [Suspect]
     Active Substance: VALPROIC ACID
     Indication: Partial seizures
     Dosage: 2000 MILLIGRAM, QD
     Route: 065
  13. CANNABIDIOL [Suspect]
     Active Substance: CANNABIDIOL
     Indication: Partial seizures
     Dosage: 150 MILLIGRAM, QD
     Route: 065

REACTIONS (2)
  - Somnolence [Recovering/Resolving]
  - Status epilepticus [Recovering/Resolving]
